FAERS Safety Report 12761413 (Version 2)
Quarter: 2016Q4

REPORT INFORMATION
  Report Type: Spontaneous
  Country: KR (occurrence: KR)
  Receive Date: 20160920
  Receipt Date: 20161003
  Transmission Date: 20170207
  Serious: Yes (Other)
  Sender: FDA-Public Use
  Company Number: KR-009507513-1609KOR007758

PATIENT
  Age: 74 Year
  Sex: Female

DRUGS (2)
  1. FOSAMAX PLUS D [Suspect]
     Active Substance: ALENDRONATE SODIUM\CHOLECALCIFEROL
     Indication: OSTEOPOROSIS
     Dosage: UNK, FOR THE PAST 2 YEARS
     Route: 048
  2. DICAMAX [Concomitant]
     Indication: OSTEOPOROSIS
     Dosage: CACO3 1250 MG AND CHOLECALCIFEROL 1000 IU MIXTURE, TAKEN FOR THE PAST 2 YEARS

REACTIONS (1)
  - Lumbar vertebral fracture [Recovering/Resolving]
